FAERS Safety Report 14625463 (Version 1)
Quarter: 2018Q1

REPORT INFORMATION
  Report Type: Spontaneous
  Country: US (occurrence: US)
  Receive Date: 20180312
  Receipt Date: 20180312
  Transmission Date: 20180509
  Serious: No
  Sender: FDA-Public Use
  Company Number: US-ALLERGAN-1749615US

PATIENT
  Age: 65 Year
  Sex: Female

DRUGS (1)
  1. OXYTROL FOR WOMEN [Suspect]
     Active Substance: OXYBUTYNIN
     Indication: HYPERTONIC BLADDER
     Dosage: UNK
     Route: 062
     Dates: start: 201612, end: 20170901

REACTIONS (4)
  - Peripheral swelling [Unknown]
  - Fatigue [Unknown]
  - Weight decreased [Unknown]
  - Dyspnoea [Unknown]
